FAERS Safety Report 9181902 (Version 2)
Quarter: 2013Q1

REPORT INFORMATION
  Report Type: Spontaneous
  Country: CN (occurrence: CN)
  Receive Date: 20130322
  Receipt Date: 20130325
  Transmission Date: 20140127
  Serious: Yes (Death)
  Sender: FDA-Public Use
  Company Number: CN-JNJFOC-20130312562

PATIENT
  Sex: 0

DRUGS (6)
  1. DOXORUBICIN [Suspect]
     Indication: ANGIOCENTRIC LYMPHOMA
     Dosage: ON DAY 1
     Route: 042
  2. DOXORUBICIN [Suspect]
     Indication: ANGIOCENTRIC LYMPHOMA
     Dosage: ON DAY 1
     Route: 065
  3. CYCLOPHOSPHAMIDE [Suspect]
     Indication: ANGIOCENTRIC LYMPHOMA
     Dosage: ON DAY 1
     Route: 065
  4. VINCRISTINE [Suspect]
     Indication: ANGIOCENTRIC LYMPHOMA
     Dosage: MAXIMUM DOSE 2.0 MG, ON DAY 1
     Route: 065
  5. PREDNISOLONE [Suspect]
     Indication: ANGIOCENTRIC LYMPHOMA
     Dosage: ON DAY 1
     Route: 065
  6. RADIOTHERAPY [Suspect]
     Indication: ANGIOCENTRIC LYMPHOMA
     Dosage: INVOLVED-FIELD
     Route: 065

REACTIONS (1)
  - Chemotherapy [Fatal]
